FAERS Safety Report 7826735-6 (Version None)
Quarter: 2011Q4

REPORT INFORMATION
  Report Type: 
  Country: None (occurrence: None)
  Receive Date: 20111018
  Receipt Date: 20111006
  Transmission Date: 20120403
  Serious: Yes (Hospitalization)
  Sender: FDA-Public Use
  Company Number: OSCN-NO-1110S-0194

PATIENT
  Age: 87 Year
  Sex: Female

DRUGS (9)
  1. OMEPRAZOLE [Concomitant]
  2. LIPANOR (CIPROFIBRATE) [Concomitant]
  3. CACIT 1000 (CALCIUM CARBONATE) [Concomitant]
  4. KALEROID (POTASSIUM CHLORIDE) [Concomitant]
  5. PROPOFAN (CAFFEINE) [Suspect]
  6. PREDNISONE [Concomitant]
  7. FOSAVANCE (FOSAVANCE) [Concomitant]
  8. TRAMADOL HCL [Concomitant]
  9. OMNISCAN [Suspect]
     Dosage: SINGLE DOSE, INTRAVENOUS
     Route: 042
     Dates: start: 20110812, end: 20110812

REACTIONS (5)
  - ERYTHEMA MULTIFORME [None]
  - SKIN LESION [None]
  - PRURITUS [None]
  - OEDEMA [None]
  - RASH MACULO-PAPULAR [None]
